FAERS Safety Report 4984864-9 (Version None)
Quarter: 2006Q2

REPORT INFORMATION
  Report Type: 
  Country: None (occurrence: None)
  Receive Date: 20060426
  Receipt Date: 20060426
  Transmission Date: 20061013
  Serious: Yes (Life-Threatening, Hospitalization, Other)
  Sender: FDA-Public Use
  Company Number: None

PATIENT
  Age: 45 Year
  Sex: Female
  Weight: 68.0396 kg

DRUGS (18)
  1. SIMVASTATIN [Suspect]
     Indication: DYSLIPIDAEMIA
     Dosage: 80MG  DAILY  PO
     Route: 048
     Dates: start: 20050530, end: 20050622
  2. ISOSORBIDE MONONITRATE [Concomitant]
  3. THIAMINE [Concomitant]
  4. FOLIC ACID [Concomitant]
  5. PANTOPRAZOLE [Concomitant]
  6. METOPROLOL SUCCINATE [Concomitant]
  7. SPIRONOLACTONE [Concomitant]
  8. LACTULOSE [Concomitant]
  9. HYDROCHLOROTHIAZIDE [Concomitant]
  10. FUROSEMIDE [Concomitant]
  11. POTASSIUM CHLORIDE [Concomitant]
  12. AMITRIPTYLINE HCL [Concomitant]
  13. VANCOMYCIN [Concomitant]
  14. PROPOXYPHENE HCL AND ACETAMINOPHEN [Concomitant]
  15. PROMETHAZINE [Concomitant]
  16. MORPHINE [Concomitant]
  17. HYDROCODONE/ACETOMINOPHEN [Concomitant]
  18. ACETAMINOPHEN [Concomitant]

REACTIONS (11)
  - ABDOMINAL PAIN [None]
  - BLOOD CREATINE PHOSPHOKINASE INCREASED [None]
  - CARDIO-RESPIRATORY ARREST [None]
  - CENTRAL LINE INFECTION [None]
  - DELIRIUM TREMENS [None]
  - DYSARTHRIA [None]
  - DYSPNOEA [None]
  - LOSS OF CONSCIOUSNESS [None]
  - PYREXIA [None]
  - STAPHYLOCOCCAL INFECTION [None]
  - URINARY TRACT INFECTION [None]
